FAERS Safety Report 18323846 (Version 1)
Quarter: 2020Q3

REPORT INFORMATION
  Report Type: Report from Study
  Country: US (occurrence: US)
  Receive Date: 20200928
  Receipt Date: 20200928
  Transmission Date: 20201103
  Serious: Yes (Death, Hospitalization, Other)
  Sender: FDA-Public Use
  Company Number: US-JNJFOC-A-NJ2020-208706

PATIENT
  Age: 83 Year
  Sex: Female
  Weight: 56.3 kg

DRUGS (3)
  1. TADALAFIL. [Concomitant]
     Active Substance: TADALAFIL
  2. ELIQUIS [Concomitant]
     Active Substance: APIXABAN
  3. UPTRAVI [Suspect]
     Active Substance: SELEXIPAG
     Indication: PULMONARY ARTERIAL HYPERTENSION
     Dosage: 600 MCG, BID
     Route: 048

REACTIONS (2)
  - Death [Fatal]
  - Cerebrovascular accident [Unknown]
